FAERS Safety Report 10841082 (Version 5)
Quarter: 2016Q3

REPORT INFORMATION
  Report Type: Spontaneous
  Country: BR (occurrence: BR)
  Receive Date: 20150220
  Receipt Date: 20160818
  Transmission Date: 20161109
  Serious: Yes (Hospitalization, Other)
  Sender: FDA-Public Use
  Company Number: BR-AMGEN-BRACT2012038812

PATIENT
  Age: 59 Year
  Sex: Female
  Weight: 60 kg

DRUGS (27)
  1. ATORVASTATIN CALCIUM. [Concomitant]
     Active Substance: ATORVASTATIN CALCIUM
     Dosage: 20 MG , 1X/DAY
     Dates: start: 2004
  2. FLUOXETINE [Concomitant]
     Active Substance: FLUOXETINE HYDROCHLORIDE
     Dosage: 80 MG , 1X/DAY
  3. SIMVASTATIN. [Concomitant]
     Active Substance: SIMVASTATIN
     Indication: BLOOD CHOLESTEROL ABNORMAL
     Dosage: UNK
     Dates: start: 2003
  4. OMEPRAZOL [Concomitant]
     Active Substance: OMEPRAZOLE
     Dosage: UNK
  5. ENBREL [Suspect]
     Active Substance: ETANERCEPT
     Indication: RHEUMATOID ARTHRITIS
     Dosage: 50 MG, WEEKLY
     Route: 058
     Dates: start: 201111, end: 2012
  6. LORATADINE. [Concomitant]
     Active Substance: LORATADINE
     Dosage: UNK
  7. ARAVA [Concomitant]
     Active Substance: LEFLUNOMIDE
     Dosage: 20 MG , 1X/DAY
     Dates: end: 2015
  8. FLUOXETINE [Concomitant]
     Active Substance: FLUOXETINE HYDROCHLORIDE
     Indication: ANTIDEPRESSANT THERAPY
     Dosage: 80 MG , 1X/DAY
  9. LORATADINE. [Concomitant]
     Active Substance: LORATADINE
     Dosage: UNK
  10. PANTOPRAZOLE [Concomitant]
     Active Substance: PANTOPRAZOLE SODIUM
     Indication: GASTRITIS
     Dosage: UNK
     Dates: start: 1998
  11. VITAMIN D [Concomitant]
     Active Substance: CHOLECALCIFEROL
  12. PREDNISONE. [Suspect]
     Active Substance: PREDNISONE
     Indication: RHEUMATOID ARTHRITIS
     Dosage: 5 MG, DAILY
     Route: 065
     Dates: start: 1996
  13. METHOTREXATE. [Concomitant]
     Active Substance: METHOTREXATE
     Dosage: 17.5 MG, WEEKLY
  14. ATORVASTATIN [Concomitant]
     Active Substance: ATORVASTATIN
     Dosage: 20 MG , 1X/DAY
  15. CALCIUM [Concomitant]
     Active Substance: CALCIUM
     Dosage: UNK
  16. METHOTREXATE. [Concomitant]
     Active Substance: METHOTREXATE
     Dosage: 17.5 MG, WEEKLY
  17. METHOTREXATE. [Concomitant]
     Active Substance: METHOTREXATE
     Dosage: 17.5 MG, WEEKLY
     Dates: start: 2012
  18. ATORVASTATIN CALCIUM. [Concomitant]
     Active Substance: ATORVASTATIN CALCIUM
     Dosage: UNK
  19. ARAVA [Concomitant]
     Active Substance: LEFLUNOMIDE
     Dosage: 20 MG , 1X/DAY
  20. ATORVASTATIN [Concomitant]
     Active Substance: ATORVASTATIN
     Dosage: 20 MG , 1X/DAY
  21. OMEPRAZOL [Concomitant]
     Active Substance: OMEPRAZOLE
     Dosage: UNK
  22. LORATADINE. [Concomitant]
     Active Substance: LORATADINE
     Dosage: UNK
  23. ENBREL [Suspect]
     Active Substance: ETANERCEPT
     Dosage: 50 MG, WEEKLY
     Route: 065
     Dates: start: 2013, end: 2014
  24. CLONAZEPAM. [Concomitant]
     Active Substance: CLONAZEPAM
     Dosage: UNK
  25. ATORVASTATIN CALCIUM. [Concomitant]
     Active Substance: ATORVASTATIN CALCIUM
     Dosage: UNK
  26. FLUOXETINE [Concomitant]
     Active Substance: FLUOXETINE HYDROCHLORIDE
     Dosage: 80 MG , 1X/DAY
     Dates: start: 2012
  27. RAMIPRIL. [Concomitant]
     Active Substance: RAMIPRIL
     Indication: BLOOD PRESSURE ABNORMAL
     Dosage: 5 MG , 1X/DAY
     Dates: start: 2003

REACTIONS (28)
  - Dislocation of vertebra [Recovered/Resolved]
  - Blood glucose abnormal [Not Recovered/Not Resolved]
  - Depression [Not Recovered/Not Resolved]
  - Dyspnoea [Unknown]
  - Herpes virus infection [Recovered/Resolved]
  - Decreased immune responsiveness [Recovered/Resolved]
  - Osteopenia [Not Recovered/Not Resolved]
  - Fungal skin infection [Recovered/Resolved]
  - Intervertebral disc protrusion [Unknown]
  - Erythema [Recovered/Resolved]
  - Hypothyroidism [Not Recovered/Not Resolved]
  - Neuritis [Not Recovered/Not Resolved]
  - Hypersensitivity [Recovered/Resolved]
  - Opportunistic infection [Recovered/Resolved]
  - Tendon rupture [Not Recovered/Not Resolved]
  - Miliaria [Recovered/Resolved]
  - Crying [Recovered/Resolved]
  - Inflammation [Not Recovered/Not Resolved]
  - Drug ineffective [Unknown]
  - Throat tightness [Recovered/Resolved]
  - Dermatitis allergic [Recovered/Resolved]
  - Feeling abnormal [Not Recovered/Not Resolved]
  - Pain [Not Recovered/Not Resolved]
  - Condition aggravated [Recovered/Resolved]
  - Rheumatoid arthritis [Not Recovered/Not Resolved]
  - Intervertebral disc injury [Unknown]
  - Weight increased [Not Recovered/Not Resolved]
  - Pharyngeal oedema [Recovered/Resolved]

NARRATIVE: CASE EVENT DATE: 2002
